FAERS Safety Report 23712893 (Version 3)
Quarter: 2024Q2

REPORT INFORMATION
  Report Type: Spontaneous
  Country: US (occurrence: US)
  Receive Date: 20240405
  Receipt Date: 20240415
  Transmission Date: 20240716
  Serious: Yes (Hospitalization, Other)
  Sender: FDA-Public Use
  Company Number: US-MLMSERVICE-20240328-4918880-1

PATIENT
  Age: 44 Year
  Sex: Male

DRUGS (1)
  1. TESTOSTERONE CYPIONATE [Suspect]
     Active Substance: TESTOSTERONE CYPIONATE
     Indication: Muscle building therapy
     Dosage: UNK

REACTIONS (5)
  - Atrial fibrillation [Recovering/Resolving]
  - Toxic cardiomyopathy [Recovering/Resolving]
  - Left ventricular dysfunction [Recovering/Resolving]
  - Drug abuse [Recovered/Resolved]
  - Off label use [Unknown]
